FAERS Safety Report 7730300-9 (Version None)
Quarter: 2011Q3

REPORT INFORMATION
  Report Type: 
  Country: None (occurrence: None)
  Receive Date: 20110817
  Receipt Date: 20110305
  Transmission Date: 20111222
  Serious: Yes (Hospitalization, Other)
  Sender: FDA-Public Use
  Company Number: 201110555

PATIENT
  Age: 48 Year
  Sex: Female

DRUGS (1)
  1. LIORESAL [Suspect]
     Indication: MUSCLE SPASTICITY
     Dosage: 50.04 MCG, DAILY, INTRATHECAL
     Route: 037

REACTIONS (5)
  - HEADACHE [None]
  - NECK PAIN [None]
  - IMPLANT SITE INFECTION [None]
  - PYREXIA [None]
  - HOSPITALISATION [None]
